FAERS Safety Report 12092340 (Version 1)
Quarter: 2016Q1

REPORT INFORMATION
  Report Type: Spontaneous
  Country: US (occurrence: None)
  Receive Date: 20160217
  Receipt Date: 20160217
  Transmission Date: 20160526
  Serious: No
  Sender: FDA-Public Use
  Company Number: None

PATIENT
  Sex: Female

DRUGS (2)
  1. DEPO-PROVERA [Suspect]
     Active Substance: MEDROXYPROGESTERONE ACETATE
     Dosage: INJECTABLE
  2. DEPO-MEDROL [Suspect]
     Active Substance: METHYLPREDNISOLONE ACETATE
     Dosage: INJECTABLE

REACTIONS (7)
  - Exposure during pregnancy [None]
  - Pregnancy [None]
  - Wrong technique in product usage process [None]
  - Drug prescribing error [None]
  - Product label confusion [None]
  - Wrong drug administered [None]
  - Product name confusion [None]
